FAERS Safety Report 18021025 (Version 1)
Quarter: 2020Q3

REPORT INFORMATION
  Report Type: Spontaneous
  Country: US (occurrence: US)
  Receive Date: 20200714
  Receipt Date: 20200714
  Transmission Date: 20201103
  Serious: Yes (Other)
  Sender: FDA-Public Use
  Company Number: US-BAYER-2020-141158

PATIENT
  Age: 90 Year
  Sex: Female

DRUGS (1)
  1. ALEVE [Suspect]
     Active Substance: NAPROXEN SODIUM
     Indication: BACK PAIN
     Dosage: 2 DF, QD
     Route: 048
     Dates: start: 20200710, end: 20200710

REACTIONS (6)
  - Faeces discoloured [Recovered/Resolved]
  - Abdominal pain upper [Not Recovered/Not Resolved]
  - Somnolence [Recovered/Resolved]
  - Dyspepsia [Not Recovered/Not Resolved]
  - Gastric haemorrhage [Recovered/Resolved]
  - Expired product administered [Unknown]

NARRATIVE: CASE EVENT DATE: 202007
